FAERS Safety Report 6940809-3 (Version None)
Quarter: 2010Q3

REPORT INFORMATION
  Report Type: 
  Country: None (occurrence: None)
  Receive Date: 20100825
  Receipt Date: 20100821
  Transmission Date: 20110219
  Serious: Yes (Death, Hospitalization)
  Sender: FDA-Public Use
  Company Number: EG-SANOFI-AVENTIS-2010SA049897

PATIENT
  Age: 21 Year
  Sex: Male

DRUGS (3)
  1. TAXOTERE [Suspect]
     Indication: HEAD AND NECK CANCER
     Route: 042
     Dates: start: 20100801, end: 20100801
  2. FLUOROURACIL [Concomitant]
     Indication: HEAD AND NECK CANCER
     Dates: start: 20100801, end: 20100801
  3. CISPLATIN [Concomitant]
     Indication: HEAD AND NECK CANCER
     Dates: start: 20100801, end: 20100801

REACTIONS (3)
  - DEATH [None]
  - DIARRHOEA [None]
  - PYREXIA [None]
